FAERS Safety Report 14851935 (Version 2)
Quarter: 2018Q2

REPORT INFORMATION
  Report Type: Report from Study
  Country: US (occurrence: US)
  Receive Date: 20180507
  Receipt Date: 20180510
  Transmission Date: 20180711
  Serious: Yes (Hospitalization)
  Sender: FDA-Public Use
  Company Number: US-ROCHE-1967309

PATIENT
  Age: 69 Year
  Sex: Male

DRUGS (26)
  1. ACTOS [Concomitant]
     Active Substance: PIOGLITAZONE HYDROCHLORIDE
     Indication: DIABETES MELLITUS
     Route: 048
     Dates: start: 20160212
  2. JARDIANCE [Concomitant]
     Active Substance: EMPAGLIFLOZIN
     Indication: DIABETES MELLITUS
     Route: 065
     Dates: start: 20140929
  3. METFORMIN [Concomitant]
     Active Substance: METFORMIN HYDROCHLORIDE
     Indication: DIABETES MELLITUS
     Route: 048
     Dates: start: 2012
  4. COSARTAN (UNK INGREDIENTS) [Concomitant]
     Indication: HYPERTENSION
     Route: 048
     Dates: start: 20140929, end: 20160202
  5. TYLENOL [Concomitant]
     Active Substance: ACETAMINOPHEN
     Indication: NASOPHARYNGITIS
     Route: 048
     Dates: start: 20141202, end: 20141216
  6. PREDNISOLONE. [Concomitant]
     Active Substance: PREDNISOLONE
     Route: 031
     Dates: start: 20150610, end: 20150616
  7. BESIVANCE [Concomitant]
     Active Substance: BESIFLOXACIN
     Indication: INFECTION PROPHYLAXIS
     Dosage: OD
     Route: 061
     Dates: start: 20150602, end: 20150609
  8. LOSARTAN. [Concomitant]
     Active Substance: LOSARTAN
     Indication: HYPERTENSION
     Dosage: 50-12.5 MG
     Route: 048
     Dates: start: 20160202
  9. RANIBIZUMAB. [Suspect]
     Active Substance: RANIBIZUMAB
     Indication: DIABETIC RETINAL OEDEMA
     Route: 050
     Dates: start: 20140521, end: 20160613
  10. LIPITOR [Concomitant]
     Active Substance: ATORVASTATIN CALCIUM
     Indication: HYPERCHOLESTEROLAEMIA
     Route: 065
     Dates: start: 20160205
  11. ASA [Concomitant]
     Active Substance: ASPIRIN
     Indication: CARDIOVASCULAR EVENT PROPHYLAXIS
     Route: 048
     Dates: start: 2012
  12. ALEVE [Concomitant]
     Active Substance: NAPROXEN SODIUM
     Indication: POST-TRAUMATIC NECK SYNDROME
     Dosage: 3 TAB PRN
     Route: 048
     Dates: start: 20140807, end: 20140915
  13. MUCINEX [Concomitant]
     Active Substance: GUAIFENESIN
     Indication: UPPER RESPIRATORY TRACT CONGESTION
     Dosage: 1 TAB PRN
     Route: 048
     Dates: start: 20150216, end: 20150318
  14. BROMFENAC [Concomitant]
     Active Substance: BROMFENAC SODIUM
     Indication: PROPHYLAXIS
     Dosage: OD
     Route: 061
     Dates: start: 20150711, end: 20150902
  15. COREG [Concomitant]
     Active Substance: CARVEDILOL
     Indication: HYPERTENSION
     Route: 065
     Dates: start: 20160406
  16. KETOROLAC [Concomitant]
     Active Substance: KETOROLAC\KETOROLAC TROMETHAMINE
     Indication: PAIN PROPHYLAXIS
     Route: 061
     Dates: start: 20150602, end: 20150616
  17. HYZAAR [Concomitant]
     Active Substance: HYDROCHLOROTHIAZIDE\LOSARTAN POTASSIUM
     Indication: HYPERCHOLESTEROLAEMIA
     Route: 048
     Dates: start: 20160212
  18. ADVIL [Concomitant]
     Active Substance: IBUPROFEN
     Indication: ARTHRITIS
     Dosage: PRN
     Route: 065
     Dates: start: 2012
  19. GLYBURIDE/METFORMIN [Concomitant]
     Active Substance: GLYBURIDE\METFORMIN
     Indication: HYPERTENSION
     Dosage: 5-500 MG
     Route: 048
     Dates: start: 2012, end: 20140928
  20. PIOGLITAZONE. [Concomitant]
     Active Substance: PIOGLITAZONE
     Indication: DIABETES MELLITUS
     Route: 048
     Dates: start: 20140126, end: 20160212
  21. ZYRTEC [Concomitant]
     Active Substance: CETIRIZINE HYDROCHLORIDE
     Indication: UPPER RESPIRATORY TRACT CONGESTION
     Dosage: 1 TABS
     Route: 048
     Dates: start: 20150216, end: 20150330
  22. PREDNISOLONE. [Concomitant]
     Active Substance: PREDNISOLONE
     Indication: PROPHYLAXIS
     Route: 031
     Dates: start: 20150513, end: 20150614
  23. PREDNISOLONE. [Concomitant]
     Active Substance: PREDNISOLONE
     Route: 065
     Dates: start: 20150602, end: 20150609
  24. NORVASC [Concomitant]
     Active Substance: AMLODIPINE BESYLATE
     Indication: HYPERTENSION
     Route: 048
     Dates: start: 20160212, end: 20160406
  25. LISINOPRIL. [Concomitant]
     Active Substance: LISINOPRIL
     Indication: ARTHRITIS
     Route: 048
     Dates: start: 2012, end: 20140928
  26. GLYBURIDE. [Concomitant]
     Active Substance: GLYBURIDE
     Indication: DIABETES MELLITUS
     Route: 048
     Dates: start: 20140929

REACTIONS (3)
  - Osteomyelitis [Unknown]
  - Localised infection [Recovered/Resolved]
  - Drug hypersensitivity [Not Recovered/Not Resolved]

NARRATIVE: CASE EVENT DATE: 20160627
